FAERS Safety Report 16617895 (Version 2)
Quarter: 2019Q3

REPORT INFORMATION
  Report Type: Report from Study
  Country: CA (occurrence: CA)
  Receive Date: 20190723
  Receipt Date: 20190724
  Transmission Date: 20191004
  Serious: Yes (Other)
  Sender: FDA-Public Use
  Company Number: CA-PFIZER INC-2014092152

PATIENT
  Age: 57 Year
  Sex: Male
  Weight: 86 kg

DRUGS (16)
  1. METHOTREXATE SODIUM. [Suspect]
     Active Substance: METHOTREXATE SODIUM
     Dosage: UNK
     Route: 065
  2. COVERSYL [Concomitant]
     Active Substance: PERINDOPRIL
     Dosage: UNK UNK, DAILY FREQ: 1 DAY; INTERVAL: 1
  3. LOPROX [Concomitant]
     Active Substance: CICLOPIROX\CICLOPIROX OLAMINE
     Dosage: UNK
  4. ASAPHEN [Concomitant]
     Active Substance: ASPIRIN
     Dosage: UNK
  5. HYDROCORTISONE VALERATE. [Concomitant]
     Active Substance: HYDROCORTISONE VALERATE
     Dosage: UNK
  6. VIT D [Concomitant]
     Active Substance: VITAMIN D NOS
     Dosage: UNK
  7. BETADERM [Concomitant]
     Active Substance: BETAMETHASONE VALERATE
     Dosage: 0.1 %, UNK
  8. PREGABALIN. [Concomitant]
     Active Substance: PREGABALIN
     Dosage: 75 MG, 2X/DAY 2 TABLETS BID FREQ: 2 DAY; INTERVAL: 1
  9. ERGOCALCIFEROL. [Concomitant]
     Active Substance: ERGOCALCIFEROL
     Dosage: UNK
  10. ASA [Concomitant]
     Active Substance: ASPIRIN
     Dosage: 80 MG, UNK
  11. CELEBREX [Concomitant]
     Active Substance: CELECOXIB
     Dosage: 200 MG, DAILY FREQ: 1 DAY; INTERVAL: 1
  12. METFORMIN [Concomitant]
     Active Substance: METFORMIN HYDROCHLORIDE
     Dosage: 500MG 0.5 TABLET IN AM AND 0.5 TABLET IN PM
  13. SENOKOT [Concomitant]
     Active Substance: SENNOSIDES
     Dosage: 75 MG, FREQ: 2 DAY; INTERVAL: 1
  14. ENBREL [Suspect]
     Active Substance: ETANERCEPT
     Indication: PSORIASIS
     Dosage: 50 MG, 2X/WEEK
     Route: 058
     Dates: start: 201212
  15. BUTRANS [Concomitant]
     Active Substance: BUPRENORPHINE
     Dosage: 10 MCG WEEKLY FREQ: 1 WEEK; INTERVAL: 1
  16. HYDROVAL [Concomitant]
     Active Substance: HYDROCORTISONE VALERATE
     Dosage: UNK

REACTIONS (9)
  - Dyspnoea exertional [Not Recovered/Not Resolved]
  - Lower respiratory tract infection [Recovered/Resolved]
  - Off label use [Unknown]
  - Product use issue [Unknown]
  - Liver injury [Not Recovered/Not Resolved]
  - Myocardial infarction [Recovered/Resolved]
  - Dizziness [Not Recovered/Not Resolved]
  - Dyspnoea [Not Recovered/Not Resolved]
  - Periarthritis [Recovering/Resolving]

NARRATIVE: CASE EVENT DATE: 2013
